FAERS Safety Report 9918262 (Version 1)
Quarter: 2014Q1

REPORT INFORMATION
  Report Type: Spontaneous
  Country: AU (occurrence: AU)
  Receive Date: 20140224
  Receipt Date: 20140224
  Transmission Date: 20141002
  Serious: Yes (Other)
  Sender: FDA-Public Use
  Company Number: AU-AMGEN-AUSSP2014011802

PATIENT
  Age: 52 Year
  Sex: Female
  Weight: 67.5 kg

DRUGS (3)
  1. XGEVA [Suspect]
     Indication: PRODUCT USED FOR UNKNOWN INDICATION
     Dosage: 120 MG, Q3WK
     Route: 058
     Dates: start: 20131104, end: 20140120
  2. DEXAMETHASONE [Concomitant]
     Dosage: 4 MG, BID
     Route: 048
  3. PEMETREXED [Concomitant]
     Route: 042

REACTIONS (1)
  - Osteonecrosis of jaw [Unknown]
